FAERS Safety Report 22618728 (Version 2)
Quarter: 2024Q3

REPORT INFORMATION
  Report Type: Spontaneous
  Country: SE (occurrence: SE)
  Receive Date: 20230620
  Receipt Date: 20240711
  Transmission Date: 20241016
  Serious: No
  Sender: PIERRE FABRE MEDICAMENT
  Company Number: SE-PFM-2023-00297

PATIENT
  Age: 3 Year
  Sex: Male
  Weight: 16 kg

DRUGS (10)
  1. PROPRANOLOL [Suspect]
     Active Substance: PROPRANOLOL HYDROCHLORIDE
     Indication: Abdominal pain
     Dosage: 1 MG/KG, TID (3/DAY)
     Route: 065
  2. PROPRANOLOL [Suspect]
     Active Substance: PROPRANOLOL HYDROCHLORIDE
     Indication: Oropharyngeal pain
     Dosage: 0.33 MG/KG
     Route: 065
  3. PROPRANOLOL [Suspect]
     Active Substance: PROPRANOLOL HYDROCHLORIDE
     Indication: Heart rate increased
  4. PROPRANOLOL [Suspect]
     Active Substance: PROPRANOLOL HYDROCHLORIDE
     Indication: Off label use
  5. ADENOSINE [Suspect]
     Active Substance: ADENOSINE
     Indication: Abdominal pain
     Dosage: 4.5 MG, BID (2/DAY) (300 ?G/KG)
     Route: 042
  6. ADENOSINE [Suspect]
     Active Substance: ADENOSINE
     Indication: Oropharyngeal pain
  7. ADENOSINE [Suspect]
     Active Substance: ADENOSINE
     Indication: Heart rate increased
  8. SOTALOL [Suspect]
     Active Substance: SOTALOL
     Indication: Abdominal pain
     Dosage: 1.3 MG/KG
     Route: 065
  9. SOTALOL [Suspect]
     Active Substance: SOTALOL
     Indication: Oropharyngeal pain
  10. SOTALOL [Suspect]
     Active Substance: SOTALOL
     Indication: Heart rate increased

REACTIONS (7)
  - Chest pain [Unknown]
  - Oropharyngeal pain [Unknown]
  - Supraventricular tachycardia [Unknown]
  - Product use in unapproved indication [Unknown]
  - Inappropriate schedule of product administration [Unknown]
  - Product administered to patient of inappropriate age [Unknown]
  - Off label use [Unknown]
